FAERS Safety Report 5627967-8 (Version None)
Quarter: 2008Q1

REPORT INFORMATION
  Report Type: 
  Country: None (occurrence: None)
  Receive Date: 20080215
  Receipt Date: 20080212
  Transmission Date: 20080703
  Serious: Yes (Other)
  Sender: FDA-Public Use
  Company Number: JP-BRISTOL-MYERS SQUIBB COMPANY-13596432

PATIENT
  Age: 3 Year
  Sex: Male

DRUGS (1)
  1. SINEMET [Suspect]
     Indication: GAIT DISTURBANCE
     Dosage: STRENGTH 60MG
     Route: 048
     Dates: start: 20060801

REACTIONS (4)
  - OLIGURIA [None]
  - OVERDOSE [None]
  - URINE COLOUR ABNORMAL [None]
  - URINE ODOUR ABNORMAL [None]
